FAERS Safety Report 25338487 (Version 2)
Quarter: 2025Q2

REPORT INFORMATION
  Report Type: Spontaneous
  Country: US (occurrence: US)
  Receive Date: 20250520
  Receipt Date: 20250604
  Transmission Date: 20250717
  Serious: No
  Sender: SANOFI AVENTIS
  Company Number: US-SA-2025SA143749

PATIENT
  Age: 61 Year
  Sex: Female

DRUGS (4)
  1. DUPIXENT [Suspect]
     Active Substance: DUPILUMAB
     Indication: Eczema
     Dosage: 300 MG, QOW
     Route: 058
     Dates: end: 202501
  2. DUPIXENT [Suspect]
     Active Substance: DUPILUMAB
     Dosage: 300 MG, QOW
     Route: 058
     Dates: start: 20250430
  3. PREDNISONE [Concomitant]
     Active Substance: PREDNISONE
     Dates: start: 20250514, end: 20250515
  4. ACRIVASTINE [Concomitant]
     Active Substance: ACRIVASTINE
     Dates: start: 20250513, end: 20250514

REACTIONS (10)
  - Rebound atopic dermatitis [Recovering/Resolving]
  - Intentional dose omission [Unknown]
  - Skin discolouration [Recovering/Resolving]
  - Dry skin [Recovering/Resolving]
  - Rash pruritic [Recovering/Resolving]
  - Migraine [Not Recovered/Not Resolved]
  - Erythema [Recovering/Resolving]
  - Urticaria [Recovering/Resolving]
  - Pruritus [Recovering/Resolving]
  - Rash [Recovering/Resolving]

NARRATIVE: CASE EVENT DATE: 20250101
